FAERS Safety Report 15655616 (Version 7)
Quarter: 2019Q2

REPORT INFORMATION
  Report Type: Spontaneous
  Country: CA (occurrence: CA)
  Receive Date: 20181126
  Receipt Date: 20190418
  Transmission Date: 20190711
  Serious: Yes (Hospitalization, Other)
  Sender: FDA-Public Use
  Company Number: CA-CELLTRION INC.-2018CA023754

PATIENT

DRUGS (9)
  1. INFLECTRA [Suspect]
     Active Substance: INFLIXIMAB-DYYB
     Dosage: 10 MG/KG, EVERY 0,2,6 WEEKS THEN EVERY 8 WEEKS
     Route: 042
     Dates: start: 20190110
  2. INFLECTRA [Suspect]
     Active Substance: INFLIXIMAB-DYYB
     Indication: COLITIS ULCERATIVE
     Dosage: 5 MG/KG 2,6 WEEKS, THEN EVERY 8 WEEKS
     Route: 042
     Dates: start: 20181009
  3. INFLECTRA [Suspect]
     Active Substance: INFLIXIMAB-DYYB
     Dosage: 5 MG/KG Q 2,6 WEEKS, THEN EVERY 8 WEEKS
     Route: 042
     Dates: start: 20181127
  4. INFLECTRA [Suspect]
     Active Substance: INFLIXIMAB-DYYB
     Dosage: 1000 MG, EVERY 0,2,6 WEEKS (RE-INDUCTION)
     Route: 042
     Dates: start: 20181227
  5. INFLECTRA [Suspect]
     Active Substance: INFLIXIMAB-DYYB
     Dosage: 10 MG/KG, EVERY 0,2,6, WEEKS THEN EVERY 8 WEEKS
     Route: 042
     Dates: start: 20190404
  6. SOLU-MEDROL [Concomitant]
     Active Substance: METHYLPREDNISOLONE SODIUM SUCCINATE
     Dosage: UNK
     Route: 042
     Dates: start: 20181009
  7. INFLECTRA [Suspect]
     Active Substance: INFLIXIMAB-DYYB
     Dosage: 5 MG/KG Q 2,6 WEEKS, THEN EVERY 8 WEEKS
     Route: 042
     Dates: start: 20181029
  8. INFLECTRA [Suspect]
     Active Substance: INFLIXIMAB-DYYB
     Dosage: 10 MG/KG, EVERY 0,2,6, WEEKS THEN EVERY 8 WEEKS
     Route: 042
     Dates: start: 20190207
  9. 5-ASA [Concomitant]
     Active Substance: MESALAMINE
     Dosage: UNK
     Route: 054
     Dates: start: 2010

REACTIONS (12)
  - Condition aggravated [Unknown]
  - Therapeutic product effect incomplete [Recovered/Resolved]
  - Oxygen saturation abnormal [Unknown]
  - Nausea [Recovered/Resolved]
  - Asthenia [Recovering/Resolving]
  - Blood pressure fluctuation [Unknown]
  - Malaise [Recovering/Resolving]
  - Syncope [Unknown]
  - Product use issue [Unknown]
  - Fatigue [Recovering/Resolving]
  - Head injury [Unknown]
  - Dizziness [Recovered/Resolved]

NARRATIVE: CASE EVENT DATE: 20181029
